FAERS Safety Report 9842288 (Version 1)
Quarter: 2013Q4

REPORT INFORMATION
  Report Type: Spontaneous
  Country: US (occurrence: None)
  Receive Date: 20131229
  Receipt Date: 20131229
  Transmission Date: 20140711
  Serious: Yes (Death)
  Sender: FDA-Public Use
  Company Number: 163-20785-13013337

PATIENT
  Age: 80 Year
  Sex: Female

DRUGS (1)
  1. THALOMID (THALIDOMIDE) (CAPSULES) [Suspect]
     Indication: MYELODYSPLASTIC SYNDROME
     Dosage: 1 IN 1D
     Route: 048
     Dates: start: 20121218, end: 20121229

REACTIONS (3)
  - Disease progression [None]
  - Myelofibrosis [None]
  - Myelodysplastic syndrome [None]
